FAERS Safety Report 20792010 (Version 2)
Quarter: 2022Q2

REPORT INFORMATION
  Report Type: Report from Study
  Country: US (occurrence: US)
  Receive Date: 20220505
  Receipt Date: 20220518
  Transmission Date: 20220721
  Serious: Yes (Other)
  Sender: FDA-Public Use
  Company Number: US-BIOGEN-2022BI01118545

PATIENT
  Age: 79 Year
  Sex: Male

DRUGS (6)
  1. ADUHELM [Suspect]
     Active Substance: ADUCANUMAB-AVWA
     Indication: Dementia Alzheimer^s type
     Route: 065
     Dates: start: 20210826
  2. ADUHELM [Suspect]
     Active Substance: ADUCANUMAB-AVWA
     Route: 042
     Dates: start: 20210826
  3. ADUHELM [Suspect]
     Active Substance: ADUCANUMAB-AVWA
     Route: 042
     Dates: start: 20211022
  4. ADUHELM [Suspect]
     Active Substance: ADUCANUMAB-AVWA
     Route: 042
     Dates: start: 20211221
  5. ADUHELM [Suspect]
     Active Substance: ADUCANUMAB-AVWA
     Route: 042
     Dates: start: 20220218
  6. ADUHELM [Suspect]
     Active Substance: ADUCANUMAB-AVWA
     Route: 042

REACTIONS (2)
  - Atrial fibrillation [Unknown]
  - Cardiac flutter [Unknown]

NARRATIVE: CASE EVENT DATE: 20220128
